FAERS Safety Report 6546529-1 (Version None)
Quarter: 2010Q1

REPORT INFORMATION
  Report Type: 
  Country: None (occurrence: None)
  Receive Date: 20100120
  Receipt Date: 20091028
  Transmission Date: 20100710
  Serious: No
  Sender: FDA-Public Use
  Company Number: 2009-00696

PATIENT
  Age: 52 Year
  Sex: Male
  Weight: 79.3795 kg

DRUGS (6)
  1. COLD REMEDY NASAL GEL [Suspect]
     Dosage: SPORADIC FOR 6 MONTHS; 6MON OR SO -
     Dates: end: 20091028
  2. VICODIN [Concomitant]
  3. FLEXERIL [Concomitant]
  4. CRESTOR [Concomitant]
  5. LISINOPRIL [Concomitant]
  6. MELOXICAM [Concomitant]

REACTIONS (1)
  - ANOSMIA [None]
